FAERS Safety Report 8423965-X (Version None)
Quarter: 2012Q2

REPORT INFORMATION
  Report Type: 
  Country: None (occurrence: None)
  Receive Date: 20120608
  Receipt Date: 20120529
  Transmission Date: 20120825
  Serious: Yes (Disabling)
  Sender: FDA-Public Use
  Company Number: US-VALEANT-2012VX002539

PATIENT
  Sex: Male

DRUGS (1)
  1. EFUDEX [Suspect]
     Route: 061

REACTIONS (3)
  - ABDOMINAL PAIN UPPER [None]
  - TERMINAL STATE [None]
  - BEDRIDDEN [None]
